FAERS Safety Report 5572656-1 (Version None)
Quarter: 2007Q4

REPORT INFORMATION
  Report Type: 
  Country: None (occurrence: None)
  Receive Date: 20071222
  Receipt Date: 20071212
  Transmission Date: 20080405
  Serious: Yes (Hospitalization)
  Sender: FDA-Public Use
  Company Number: FR-PFIZER INC-2006110644

PATIENT
  Sex: Male
  Weight: 79 kg

DRUGS (6)
  1. SUTENT [Suspect]
     Indication: METASTATIC RENAL CELL CARCINOMA
     Route: 048
  2. ACETYLSALICYLATE LYSINE [Concomitant]
     Route: 048
  3. PREDNISOLONE [Concomitant]
     Route: 048
     Dates: start: 20060103
  4. OMEPRAZOLE [Concomitant]
     Route: 048
     Dates: start: 20060103
  5. NICARDIPINE HYDROCHLORIDE [Concomitant]
     Route: 048
  6. ALL OTHER THERAPEUTIC PRODUCTS [Concomitant]
     Route: 048
     Dates: start: 20060915

REACTIONS (1)
  - PLEURAL EFFUSION [None]
